FAERS Safety Report 24604617 (Version 2)
Quarter: 2024Q4

REPORT INFORMATION
  Report Type: Report from Study
  Country: US (occurrence: US)
  Receive Date: 20241111
  Receipt Date: 20241129
  Transmission Date: 20250114
  Serious: Yes (Other)
  Sender: AMGEN
  Company Number: US-AMGEN-USASL2024219812

PATIENT
  Age: 64 Year
  Sex: Female

DRUGS (13)
  1. VECTIBIX [Suspect]
     Active Substance: PANITUMUMAB
     Indication: Product used for unknown indication
     Dosage: UNK UNK, Q2WK (100 MG, 5 ML (20 MG/ML)
     Route: 040
  2. VECTIBIX [Suspect]
     Active Substance: PANITUMUMAB
     Dosage: 489 MILLIGRAM, Q2WK (100 MG, 5 ML (20 MG/ML)
     Route: 040
     Dates: start: 20240923
  3. VECTIBIX [Suspect]
     Active Substance: PANITUMUMAB
     Dosage: 489 MILLIGRAM, Q2WK (100 MG, 5 ML (20 MG/ML)
     Route: 040
     Dates: start: 20241021
  4. ELOXATIN [Concomitant]
     Active Substance: OXALIPLATIN
     Dosage: 150 MILLIGRAM
     Route: 040
  5. LEUCOVORIN CALCIUM [Concomitant]
     Active Substance: LEUCOVORIN CALCIUM
     Dosage: 740 MILLIGRAM
     Route: 040
  6. FLUOROURACIL [Concomitant]
     Active Substance: FLUOROURACIL
     Dosage: 740 MILLIGRAM, 4440 MILLIGRAM RECEIVED ON 23/SEP/2024 AND 667 MILLIGRAM, 3996 MILLIGRAM (CLX 46 HRS)
     Route: 040
  7. CINVANTI [Concomitant]
     Active Substance: APREPITANT
     Dosage: 130 MILLIGRAM
     Route: 040
  8. ALOXI [Concomitant]
     Active Substance: PALONOSETRON HYDROCHLORIDE
     Dosage: 250 MICROGRAM
  9. DECADRON [Concomitant]
     Active Substance: DEXAMETHASONE
     Dosage: 12 MILLIGRAM
  10. MAGNESIUM SULFATE [Concomitant]
     Active Substance: MAGNESIUM SULFATE
     Dosage: 2000 MILLIGRAM RECEIVED ON 23/SEP/2024 AND 400 MILLIGRAM RECEIVED ON 21/OCT/2024
     Route: 040
  11. COMPAZINE [Concomitant]
     Active Substance: PROCHLORPERAZINE MALEATE
     Dosage: 10 MILLIGRAM
     Route: 040
  12. PEPCID [Concomitant]
     Active Substance: FAMOTIDINE
     Dosage: 20 MILLIGRAM
  13. ALBUTEROL SULFATE [Concomitant]
     Active Substance: ALBUTEROL SULFATE
     Dosage: 90 MICROGRAM (2 PUFFS)

REACTIONS (14)
  - Stridor [Recovering/Resolving]
  - Neuropathy peripheral [Unknown]
  - Dyspnoea [Recovering/Resolving]
  - Skin disorder [Unknown]
  - Feeling cold [Recovering/Resolving]
  - Rhinorrhoea [Unknown]
  - Diarrhoea [Recovering/Resolving]
  - Dizziness [Unknown]
  - Nausea [Recovering/Resolving]
  - Rash [Recovering/Resolving]
  - Dry skin [Recovering/Resolving]
  - Fatigue [Unknown]
  - Asthenia [Unknown]
  - Blood magnesium decreased [Unknown]

NARRATIVE: CASE EVENT DATE: 20240101
